FAERS Safety Report 6474882-6 (Version None)
Quarter: 2009Q4

REPORT INFORMATION
  Report Type: 
  Country: None (occurrence: None)
  Receive Date: 20091204
  Receipt Date: 20090217
  Transmission Date: 20100525
  Serious: Yes (Other)
  Sender: FDA-Public Use
  Company Number: IT-ELI_LILLY_AND_COMPANY-IT200902004750

PATIENT
  Age: 7 Year
  Sex: Female

DRUGS (5)
  1. HUMATROPE [Suspect]
     Dosage: 5 MG, WEEKLY (1/W) (15 UI, 0.16MG/KG PER WEEK)
     Dates: start: 20040301, end: 20040701
  2. HUMATROPE [Suspect]
     Dosage: 3 MG, WEEKLY (1/W)
     Dates: start: 20050301
  3. CORTISONE [Concomitant]
     Dosage: 6 MG, DAILY (1/D)
     Route: 065
     Dates: start: 20020101, end: 20020101
  4. CORTISONE [Concomitant]
     Dosage: UNK, UNKNOWN
     Route: 065
     Dates: start: 20020301, end: 20020701
  5. CORTISONE [Concomitant]
     Dosage: UNK, UNKNOWN
     Route: 065
     Dates: start: 20040101

REACTIONS (1)
  - BRAIN OEDEMA [None]
